FAERS Safety Report 21982492 (Version 1)
Quarter: 2023Q1

REPORT INFORMATION
  Report Type: Report from Study
  Country: BR (occurrence: BR)
  Receive Date: 20230213
  Receipt Date: 20230213
  Transmission Date: 20230418
  Serious: Yes (Death, Hospitalization)
  Sender: FDA-Public Use
  Company Number: BR-JNJFOC-20230218742

PATIENT
  Age: 73 Year
  Sex: Female

DRUGS (1)
  1. REMICADE [Suspect]
     Active Substance: INFLIXIMAB
     Indication: Rheumatoid arthritis
     Dosage: IN THE SYSTEM, THE STARTING DATE OF TREATMENT IS DESCRIBED AS TWO YEARS AGO, WITHOUT AN EXACT DATE.
     Route: 041

REACTIONS (3)
  - Urosepsis [Fatal]
  - Renal disorder [Fatal]
  - Urinary tract infection [Fatal]
